FAERS Safety Report 23934635 (Version 2)
Quarter: 2024Q2

REPORT INFORMATION
  Report Type: Spontaneous
  Country: CA (occurrence: CA)
  Receive Date: 20240603
  Receipt Date: 20240620
  Transmission Date: 20240716
  Serious: Yes (Other)
  Sender: FDA-Public Use
  Company Number: CA-SANDOZ-SDZ2024CA053861

PATIENT
  Sex: Female

DRUGS (1)
  1. ERELZI [Suspect]
     Active Substance: ETANERCEPT-SZZS
     Indication: Psoriatic arthropathy
     Dosage: 50MG SC Q 1 WEEK;WEEKLY
     Route: 058
     Dates: start: 20220612

REACTIONS (5)
  - Psoriatic arthropathy [Recovered/Resolved]
  - Tonsillitis [Recovered/Resolved]
  - Sinusitis [Recovered/Resolved]
  - Therapeutic product effect delayed [Unknown]
  - Intentional dose omission [Unknown]
